FAERS Safety Report 7836506-2 (Version None)
Quarter: 2011Q4

REPORT INFORMATION
  Report Type: 
  Country: None (occurrence: None)
  Receive Date: 20111024
  Receipt Date: 20111019
  Transmission Date: 20120403
  Serious: Yes (Life-Threatening, Hospitalization, Other)
  Sender: FDA-Public Use
  Company Number: ZA-ASTRAZENECA-2011SE63163

PATIENT
  Sex: Female

DRUGS (4)
  1. SEROQUEL [Suspect]
     Indication: MANIA
     Route: 048
  2. VALPROATE SODIUM [Interacting]
     Indication: MANIA
     Route: 048
  3. ATIVAN [Interacting]
     Indication: MANIA
  4. SEROQUEL [Interacting]
     Route: 048

REACTIONS (3)
  - MANIA [None]
  - RESPIRATORY DISTRESS [None]
  - DRUG INTERACTION [None]
